FAERS Safety Report 7767444-1 (Version None)
Quarter: 2011Q3

REPORT INFORMATION
  Report Type: 
  Country: None (occurrence: None)
  Receive Date: 20110922
  Receipt Date: 20100826
  Transmission Date: 20111222
  Serious: Yes (Other)
  Sender: FDA-Public Use
  Company Number: US-ASTRAZENECA-2010SE40203

PATIENT
  Age: 7 Year
  Sex: Male
  Weight: 37.2 kg

DRUGS (2)
  1. RITALIN [Concomitant]
     Dates: start: 20100703
  2. SEROQUEL [Suspect]
     Indication: AFFECTIVE DISORDER
     Route: 048
     Dates: start: 20100817, end: 20100818

REACTIONS (4)
  - CRYING [None]
  - SELF INJURIOUS BEHAVIOUR [None]
  - DEPRESSED MOOD [None]
  - SUICIDAL IDEATION [None]
